FAERS Safety Report 8768437 (Version 1)
Quarter: 2012Q4

REPORT INFORMATION
  Report Type: 
  Country: GB (occurrence: GB)
  Receive Date: 20120905
  Receipt Date: 20120905
  Transmission Date: 20130627
  Serious: Yes (Other)
  Sender: FDA-Public Use
  Company Number: GB-ROCHE-1109290

PATIENT

DRUGS (1)
  1. LUCENTIS [Suspect]
     Indication: AGE-RELATED MACULAR DEGENERATION
     Route: 050
     Dates: start: 20100317

REACTIONS (4)
  - Kidney infection [Recovered/Resolved]
  - Ear infection [Recovered/Resolved]
  - General physical condition abnormal [Unknown]
  - Diarrhoea [Recovered/Resolved]
